FAERS Safety Report 5416598-0 (Version None)
Quarter: 2007Q3

REPORT INFORMATION
  Report Type: 
  Country: None (occurrence: None)
  Receive Date: 20070816
  Receipt Date: 20070806
  Transmission Date: 20080115
  Serious: Yes (Hospitalization)
  Sender: FDA-Public Use
  Company Number: KR-AVENTIS-200717208GDDC

PATIENT
  Age: 48 Year
  Sex: Female
  Weight: 68.2 kg

DRUGS (11)
  1. DOCETAXEL [Suspect]
     Route: 042
     Dates: start: 20070503, end: 20070503
  2. CIPROFLOXACIN [Concomitant]
     Route: 048
  3. CONOFEN [Concomitant]
     Dosage: DOSE: 2C
     Route: 048
  4. DEXAMETHASONE 0.5MG TAB [Concomitant]
     Route: 048
  5. DEXAMETHASONE 0.5MG TAB [Concomitant]
     Route: 042
  6. RANITIDINE [Concomitant]
     Route: 048
  7. RANITIDINE [Concomitant]
     Route: 042
  8. TROPISETRON [Concomitant]
     Route: 042
  9. TROPISETRON [Concomitant]
     Route: 048
  10. PHENIRAMINE MALEATE [Concomitant]
     Route: 042
  11. MAGNESIUM OXIDE [Concomitant]
     Route: 048

REACTIONS (1)
  - GLUCOSE TOLERANCE IMPAIRED [None]
